FAERS Safety Report 5377985-2 (Version None)
Quarter: 2007Q2

REPORT INFORMATION
  Report Type: 
  Country: None (occurrence: None)
  Receive Date: 20070629
  Receipt Date: 20070625
  Transmission Date: 20071010
  Serious: Yes (Death, Hospitalization)
  Sender: FDA-Public Use
  Company Number: 163-21880-07061377

PATIENT
  Sex: Female

DRUGS (1)
  1. REVLIMID [Suspect]
     Indication: MULTIPLE MYELOMA
     Dosage: ORAL
     Route: 048

REACTIONS (6)
  - ASPERGILLOSIS [None]
  - MULTI-ORGAN FAILURE [None]
  - PNEUMONIA [None]
  - RESPIRATORY FAILURE [None]
  - SEPSIS [None]
  - WHITE BLOOD CELL COUNT DECREASED [None]
